FAERS Safety Report 21036911 (Version 2)
Quarter: 2023Q2

REPORT INFORMATION
  Report Type: Report from Study
  Country: US (occurrence: US)
  Receive Date: 20220702
  Receipt Date: 20230529
  Transmission Date: 20230721
  Serious: Yes (Other)
  Sender: FDA-Public Use
  Company Number: US-TAKEDA-US201721917

PATIENT
  Age: 37 Year
  Sex: Female
  Weight: 47 kg

DRUGS (19)
  1. TEDUGLUTIDE [Suspect]
     Active Substance: TEDUGLUTIDE
     Indication: Short-bowel syndrome
     Dosage: 2 MILLIGRAM, QD
     Route: 042
     Dates: start: 20131030, end: 20140118
  2. TEDUGLUTIDE [Suspect]
     Active Substance: TEDUGLUTIDE
     Indication: Short-bowel syndrome
     Dosage: 2 MILLIGRAM, QD
     Route: 042
     Dates: start: 20131030, end: 20140118
  3. TEDUGLUTIDE [Suspect]
     Active Substance: TEDUGLUTIDE
     Indication: Short-bowel syndrome
     Dosage: 2 MILLIGRAM, QD
     Route: 042
     Dates: start: 20131030, end: 20140118
  4. TEDUGLUTIDE [Suspect]
     Active Substance: TEDUGLUTIDE
     Indication: Short-bowel syndrome
     Dosage: 2 MILLIGRAM, QD
     Route: 042
     Dates: start: 20131030, end: 20140118
  5. TEDUGLUTIDE [Suspect]
     Active Substance: TEDUGLUTIDE
     Dosage: 2 MILLIGRAM, QD
     Route: 042
     Dates: start: 20140121, end: 201510
  6. TEDUGLUTIDE [Suspect]
     Active Substance: TEDUGLUTIDE
     Dosage: 2 MILLIGRAM, QD
     Route: 042
     Dates: start: 20140121, end: 201510
  7. TEDUGLUTIDE [Suspect]
     Active Substance: TEDUGLUTIDE
     Dosage: 2 MILLIGRAM, QD
     Route: 042
     Dates: start: 20140121, end: 201510
  8. TEDUGLUTIDE [Suspect]
     Active Substance: TEDUGLUTIDE
     Dosage: 2 MILLIGRAM, QD
     Route: 042
     Dates: start: 20140121, end: 201510
  9. TEDUGLUTIDE [Suspect]
     Active Substance: TEDUGLUTIDE
     Dosage: 2 MILLIGRAM, 3/WEEK
     Route: 042
     Dates: start: 201510
  10. TEDUGLUTIDE [Suspect]
     Active Substance: TEDUGLUTIDE
     Dosage: 2 MILLIGRAM, 3/WEEK
     Route: 042
     Dates: start: 201510
  11. TEDUGLUTIDE [Suspect]
     Active Substance: TEDUGLUTIDE
     Dosage: 2 MILLIGRAM, 3/WEEK
     Route: 042
     Dates: start: 201510
  12. TEDUGLUTIDE [Suspect]
     Active Substance: TEDUGLUTIDE
     Dosage: 2 MILLIGRAM, 3/WEEK
     Route: 042
     Dates: start: 201510
  13. FLUDROCORTISONE [Concomitant]
     Active Substance: FLUDROCORTISONE
     Indication: Primary adrenal insufficiency
     Dosage: 0.05 MG, 1X/DAY:QD
     Route: 048
     Dates: start: 201705
  14. HYDROCORTISONE [Concomitant]
     Active Substance: HYDROCORTISONE
     Indication: Primary adrenal insufficiency
     Dosage: 5 MG, 1X/DAY:QD
     Route: 048
     Dates: start: 201705
  15. DIMETHYL SULFONE [Concomitant]
     Active Substance: DIMETHYL SULFONE
     Indication: Alopecia
     Dosage: 2 CAP, 1X/DAY:QD
     Route: 048
     Dates: start: 201502
  16. LOVENOX [Concomitant]
     Active Substance: ENOXAPARIN SODIUM
     Indication: Pulmonary embolism
     Dosage: 40 MILLIGRAM, BID
     Route: 058
     Dates: start: 20201011
  17. WARFARIN [Concomitant]
     Active Substance: WARFARIN
     Indication: Pulmonary embolism
     Dosage: 3 MILLIGRAM, QD
     Route: 048
     Dates: start: 20201011, end: 20201011
  18. WARFARIN [Concomitant]
     Active Substance: WARFARIN
     Dosage: 2 MILLIGRAM, QD
     Route: 048
     Dates: start: 20201012
  19. ZINC SULFATE [Concomitant]
     Active Substance: ZINC SULFATE
     Indication: Routine health maintenance
     Dosage: 1 DOSAGE FORM, QD
     Route: 048
     Dates: start: 201803

REACTIONS (2)
  - Abortion spontaneous [Recovered/Resolved]
  - Pregnancy [Recovered/Resolved]

NARRATIVE: CASE EVENT DATE: 20170702
